FAERS Safety Report 21342790 (Version 1)
Quarter: 2022Q3

REPORT INFORMATION
  Report Type: Spontaneous
  Country: US (occurrence: US)
  Receive Date: 20220916
  Receipt Date: 20220916
  Transmission Date: 20221027
  Serious: Yes (Other)
  Sender: FDA-Public Use
  Company Number: US-Shilpa Medicare Limited-SML-US-2022-01116

PATIENT
  Age: 75 Year
  Sex: Male

DRUGS (7)
  1. ZOLEDRONIC ACID [Suspect]
     Active Substance: ZOLEDRONIC ACID
     Indication: Hypercalcaemia
     Dosage: 2 INFUSIONS
  2. DENOSUMAB [Suspect]
     Active Substance: DENOSUMAB
     Indication: Hypercalcaemia
  3. NIVOLUMAB [Suspect]
     Active Substance: NIVOLUMAB
     Indication: Sarcomatoid mesothelioma
  4. NIVOLUMAB [Suspect]
     Active Substance: NIVOLUMAB
     Indication: Prostate cancer metastatic
  5. IPILIMUMAB [Suspect]
     Active Substance: IPILIMUMAB
     Indication: Sarcomatoid mesothelioma
  6. IPILIMUMAB [Suspect]
     Active Substance: IPILIMUMAB
     Indication: Prostate cancer metastatic
  7. CALCITONIN [Suspect]
     Active Substance: CALCITONIN
     Indication: Hypercalcaemia

REACTIONS (1)
  - Drug ineffective [Unknown]
